FAERS Safety Report 6240409-7 (Version None)
Quarter: 2009Q2

REPORT INFORMATION
  Report Type: 
  Country: None (occurrence: None)
  Receive Date: 20090618
  Receipt Date: 20090618
  Transmission Date: 20091009
  Serious: Yes (Other)
  Sender: FDA-Public Use
  Company Number: None

PATIENT
  Age: 41 Year
  Sex: Female
  Weight: 86.1834 kg

DRUGS (2)
  1. SEROQUEL [Suspect]
     Indication: BIPOLAR DISORDER
     Dosage: 1600MG BEDTIME ONLY
     Dates: start: 20040123, end: 20090613
  2. SEROQUEL [Suspect]
     Dosage: 300MG BEDTIME

REACTIONS (5)
  - BLOOD PROLACTIN INCREASED [None]
  - BREAST MASS [None]
  - BREAST PAIN [None]
  - INSOMNIA [None]
  - WEIGHT INCREASED [None]
